FAERS Safety Report 6099632-7 (Version None)
Quarter: 2009Q1

REPORT INFORMATION
  Report Type: 
  Country: None (occurrence: None)
  Receive Date: 20090303
  Receipt Date: 20090219
  Transmission Date: 20090719
  Serious: No
  Sender: FDA-Public Use
  Company Number: US-ROCHE-480641

PATIENT
  Age: 61 Year
  Sex: Female

DRUGS (7)
  1. BONIVA [Suspect]
     Indication: DRUG USE FOR UNKNOWN INDICATION
     Dosage: FREQUENCY REPORTED AS MONTHLY
     Route: 065
     Dates: start: 20060101
  2. NADOLOL [Concomitant]
  3. SYNTHROID [Concomitant]
  4. VITAMIN [Concomitant]
     Dosage: WEEKLY, 50,000 UNITS
  5. IMITREX [Concomitant]
     Indication: MIGRAINE
  6. TYLENOL [Concomitant]
     Dosage: ^LOTS^ OF TYLENOL.
  7. PREMARIN [Concomitant]

REACTIONS (3)
  - CALCINOSIS [None]
  - GASTROOESOPHAGEAL REFLUX DISEASE [None]
  - NECK PAIN [None]
